FAERS Safety Report 4846992-8 (Version None)
Quarter: 2005Q4

REPORT INFORMATION
  Report Type: 
  Country: None (occurrence: None)
  Receive Date: 20051201
  Receipt Date: 20051121
  Transmission Date: 20060501
  Serious: Yes (Other)
  Sender: FDA-Public Use
  Company Number: 2005158047

PATIENT
  Age: 62 Year
  Sex: Female

DRUGS (1)
  1. BEN-GAY ULTRA (MENTHOL, CAMPHOR, METHYL SALICYLATE) [Suspect]
     Indication: ACCIDENTAL EXPOSURE
     Dosage: A ^BLOB^ ONCE,OPHTHALMIC
     Route: 047
     Dates: start: 20051101, end: 20051101

REACTIONS (5)
  - ACCIDENTAL EXPOSURE [None]
  - EYE DISCHARGE [None]
  - EYE PAIN [None]
  - THERMAL BURNS OF EYE [None]
  - VISION BLURRED [None]
